FAERS Safety Report 21253114 (Version 1)
Quarter: 2022Q3

REPORT INFORMATION
  Report Type: Spontaneous
  Country: US (occurrence: US)
  Receive Date: 20220825
  Receipt Date: 20220825
  Transmission Date: 20221027
  Serious: Yes (Other)
  Sender: FDA-Public Use
  Company Number: US-Accord-274029

PATIENT

DRUGS (3)
  1. FLUOROURACIL [Suspect]
     Active Substance: FLUOROURACIL
     Indication: Product used for unknown indication
     Dates: start: 202106, end: 202111
  2. OXALIPLATIN [Suspect]
     Active Substance: OXALIPLATIN
     Indication: Product used for unknown indication
     Dates: start: 202106, end: 202111
  3. LEUCOVORIN [Concomitant]
     Active Substance: LEUCOVORIN
     Dates: start: 202106, end: 202111

REACTIONS (1)
  - Colorectal cancer recurrent [Unknown]
